FAERS Safety Report 22654362 (Version 1)
Quarter: 2023Q2

REPORT INFORMATION
  Report Type: Report from Study
  Country: US (occurrence: US)
  Receive Date: 20230629
  Receipt Date: 20230629
  Transmission Date: 20230721
  Serious: Yes (Other)
  Sender: FDA-Public Use
  Company Number: US-002147023-NVSC2023US147212

PATIENT
  Age: 62 Year
  Sex: Male

DRUGS (1)
  1. ENTRESTO [Suspect]
     Active Substance: SACUBITRIL\VALSARTAN
     Indication: Cardiac failure
     Dosage: 24.26 MG (1 DOSAGE FORM, BID)
     Route: 048
     Dates: start: 20230509

REACTIONS (6)
  - Muscle hypertrophy [Unknown]
  - Muscle tightness [Unknown]
  - Peripheral swelling [Unknown]
  - Weight increased [Unknown]
  - Myalgia [Unknown]
  - Blood sodium decreased [Unknown]

NARRATIVE: CASE EVENT DATE: 20230501
